FAERS Safety Report 19306281 (Version 1)
Quarter: 2021Q2

REPORT INFORMATION
  Report Type: Spontaneous
  Country: US (occurrence: US)
  Receive Date: 20210525
  Receipt Date: 20210525
  Transmission Date: 20210717
  Serious: Yes (Hospitalization)
  Sender: FDA-Public Use
  Company Number: None

PATIENT
  Age: 40 Year
  Sex: Male
  Weight: 127.4 kg

DRUGS (5)
  1. IMATINIB. [Suspect]
     Active Substance: IMATINIB MESYLATE
     Indication: GASTROINTESTINAL STROMAL TUMOUR
     Route: 048
     Dates: start: 20210202, end: 20210525
  2. NORCO [Concomitant]
     Active Substance: ACETAMINOPHEN\HYDROCODONE BITARTRATE
  3. ALLOPURINOL. [Concomitant]
     Active Substance: ALLOPURINOL
  4. PREDNISONE. [Concomitant]
     Active Substance: PREDNISONE
  5. VITAMIN B?1 [Concomitant]
     Active Substance: THIAMINE HYDROCHLORIDE

REACTIONS (1)
  - Hospitalisation [None]
